FAERS Safety Report 12157934 (Version 1)
Quarter: 2016Q1

REPORT INFORMATION
  Report Type: Spontaneous
  Country: US (occurrence: US)
  Receive Date: 20160308
  Receipt Date: 20160308
  Transmission Date: 20160526
  Serious: No
  Sender: FDA-Public Use
  Company Number: US-JNJFOC-20150200156

PATIENT
  Age: 89 Year
  Sex: Male

DRUGS (4)
  1. RITUXAN [Concomitant]
     Active Substance: RITUXIMAB
     Indication: RHEUMATOID ARTHRITIS
  2. CALCIUM [Concomitant]
     Active Substance: CALCIUM
  3. ACYCLOVIR. [Concomitant]
     Active Substance: ACYCLOVIR
     Indication: ANTIVIRAL PROPHYLAXIS
  4. IMBRUVICA [Suspect]
     Active Substance: IBRUTINIB
     Indication: MANTLE CELL LYMPHOMA
     Route: 048
     Dates: start: 2014

REACTIONS (5)
  - Nasal congestion [Recovering/Resolving]
  - Rhinorrhoea [Recovered/Resolved]
  - Throat irritation [Recovering/Resolving]
  - Increased upper airway secretion [Recovering/Resolving]
  - Nasopharyngitis [Recovering/Resolving]

NARRATIVE: CASE EVENT DATE: 201501
